FAERS Safety Report 6962753-8 (Version None)
Quarter: 2010Q3

REPORT INFORMATION
  Report Type: 
  Country: None (occurrence: None)
  Receive Date: 20100902
  Receipt Date: 20100823
  Transmission Date: 20110219
  Serious: Yes (Hospitalization)
  Sender: FDA-Public Use
  Company Number: US-BRISTOL-MYERS SQUIBB COMPANY-15264112

PATIENT
  Age: 69 Year
  Sex: Female
  Weight: 54 kg

DRUGS (5)
  1. CETUXIMAB [Suspect]
     Indication: NON-SMALL CELL LUNG CANCER
     Dosage: INTERRUPTED ON 13AUG2010(22DAYS)
     Route: 042
     Dates: start: 20100722
  2. CARBOPLATIN [Suspect]
     Indication: NON-SMALL CELL LUNG CANCER
     Dosage: INTERRUPTED ON 13AUG2010(22DAYS)
     Route: 042
     Dates: start: 20100722
  3. GEMCITABINE [Suspect]
     Indication: NON-SMALL CELL LUNG CANCER
     Dosage: INTERRUPTED ON 13AUG2010(22DAYS)
     Route: 042
     Dates: start: 20100722
  4. LOVENOX [Concomitant]
     Indication: PULMONARY EMBOLISM
     Route: 058
     Dates: start: 20100728, end: 20100803
  5. ATIVAN [Concomitant]
     Dates: start: 20100802

REACTIONS (1)
  - ARTERIAL THROMBOSIS [None]
